FAERS Safety Report 4354592-1 (Version None)
Quarter: 2004Q2

REPORT INFORMATION
  Report Type: 
  Country: None (occurrence: None)
  Receive Date: 20040506
  Receipt Date: 20040506
  Transmission Date: 20050107
  Serious: Yes (Hospitalization)
  Sender: FDA-Public Use
  Company Number: None

PATIENT
  Age: 60 Year
  Sex: Male
  Weight: 87.3 kg

DRUGS (8)
  1. TAXOTERE [Suspect]
     Indication: LARYNGEAL CANCER
     Dosage: 64 MG OVER 1 HOU INTRAVENOUS
     Route: 042
     Dates: start: 20040421, end: 20040428
  2. TAXOTERE [Suspect]
     Indication: METASTASES TO LIVER
     Dosage: 64 MG OVER 1 HOU INTRAVENOUS
     Route: 042
     Dates: start: 20040421, end: 20040428
  3. TAXOTERE [Suspect]
     Indication: NEOPLASM RECURRENCE
     Dosage: 64 MG OVER 1 HOU INTRAVENOUS
     Route: 042
     Dates: start: 20040421, end: 20040428
  4. TAXOTERE [Suspect]
     Indication: SQUAMOUS CELL CARCINOMA
     Dosage: 64 MG OVER 1 HOU INTRAVENOUS
     Route: 042
     Dates: start: 20040421, end: 20040428
  5. IRINOTECAN PHARMACIA [Suspect]
     Indication: LARYNGEAL CANCER
     Dosage: 109 MG OVER 35 MI INTRAVENOUS
     Route: 042
     Dates: start: 20040421, end: 20040428
  6. IRINOTECAN PHARMACIA [Suspect]
     Indication: METASTASES TO LIVER
     Dosage: 109 MG OVER 35 MI INTRAVENOUS
     Route: 042
     Dates: start: 20040421, end: 20040428
  7. IRINOTECAN PHARMACIA [Suspect]
     Indication: NEOPLASM RECURRENCE
     Dosage: 109 MG OVER 35 MI INTRAVENOUS
     Route: 042
     Dates: start: 20040421, end: 20040428
  8. IRINOTECAN PHARMACIA [Suspect]
     Indication: SQUAMOUS CELL CARCINOMA
     Dosage: 109 MG OVER 35 MI INTRAVENOUS
     Route: 042
     Dates: start: 20040421, end: 20040428

REACTIONS (7)
  - ABDOMINAL PAIN [None]
  - ANOREXIA [None]
  - DIARRHOEA [None]
  - DYSPNOEA [None]
  - FLUID INTAKE REDUCED [None]
  - NAUSEA [None]
  - VOMITING [None]
